FAERS Safety Report 19302163 (Version 1)
Quarter: 2021Q2

REPORT INFORMATION
  Report Type: Spontaneous
  Country: IN (occurrence: IN)
  Receive Date: 20210525
  Receipt Date: 20210525
  Transmission Date: 20210717
  Serious: Yes (Hospitalization, Other)
  Sender: FDA-Public Use
  Company Number: IN-SA-2021SA166004

PATIENT
  Age: 49 Year
  Sex: Female

DRUGS (1)
  1. ANTI?THYMOCYTE GLOBULIN (RABBIT) NOS [Suspect]
     Active Substance: LAPINE T-LYMPHOCYTE IMMUNE GLOBULIN
     Indication: IMMUNOSUPPRESSANT DRUG THERAPY

REACTIONS (12)
  - Dizziness [Recovering/Resolving]
  - Fatigue [Recovering/Resolving]
  - Bone marrow failure [Recovering/Resolving]
  - Refractoriness to platelet transfusion [Recovering/Resolving]
  - Lymphocytosis [Recovering/Resolving]
  - Epstein-Barr virus infection reactivation [Recovering/Resolving]
  - Hyperbilirubinaemia [Recovering/Resolving]
  - Aplastic anaemia [Recovering/Resolving]
  - Dyspnoea [Recovering/Resolving]
  - Pancytopenia [Recovering/Resolving]
  - Lymphadenopathy [Recovering/Resolving]
  - Pallor [Recovering/Resolving]
